FAERS Safety Report 10195206 (Version 1)
Quarter: 2014Q2

REPORT INFORMATION
  Report Type: Spontaneous
  Country: US (occurrence: US)
  Receive Date: 20140526
  Receipt Date: 20140526
  Transmission Date: 20141212
  Serious: No
  Sender: FDA-Public Use
  Company Number: GB-ASTRAZENECA-2014SE33091

PATIENT
  Sex: 0

DRUGS (2)
  1. PRILOSEC [Suspect]
     Route: 048
  2. METHOTREXATE [Suspect]
     Route: 065

REACTIONS (4)
  - Migraine [Unknown]
  - Abnormal sleep-related event [Unknown]
  - Asthenia [Unknown]
  - Nausea [Unknown]
